FAERS Safety Report 6712387-5 (Version None)
Quarter: 2010Q2

REPORT INFORMATION
  Report Type: 
  Country: None (occurrence: None)
  Receive Date: 20100505
  Receipt Date: 20100426
  Transmission Date: 20101027
  Serious: Yes (Other)
  Sender: FDA-Public Use
  Company Number: IE-ROCHE-699767

PATIENT
  Age: 40 Year
  Sex: Male

DRUGS (2)
  1. PEGASYS [Suspect]
     Indication: HEPATITIS C
     Dosage: STOPPED AT 29 WEEKS
     Route: 065
  2. COPEGUS [Suspect]
     Indication: HEPATITIS C
     Dosage: FREQUENCY: DAILY, STOPPED AT 29 WEEKS
     Route: 065

REACTIONS (3)
  - CEREBRAL ISCHAEMIA [None]
  - HEADACHE [None]
  - PHOTOPSIA [None]
